FAERS Safety Report 9351508 (Version 2)
Quarter: 2013Q3

REPORT INFORMATION
  Report Type: Report from Study
  Country: US (occurrence: US)
  Receive Date: 20130617
  Receipt Date: 20130712
  Transmission Date: 20140515
  Serious: Yes (Hospitalization)
  Sender: FDA-Public Use
  Company Number: US-ACTELION-A-US2013-83623

PATIENT
  Age: 73 Year
  Sex: Male

DRUGS (4)
  1. VENTAVIS [Suspect]
     Indication: PULMONARY HYPERTENSION
     Dosage: 5 UNK, UNK
     Route: 055
  2. VENTAVIS [Suspect]
     Dosage: 2.5 UNK, UNK
     Route: 055
  3. CIALIS [Concomitant]
  4. ADCIRCA [Concomitant]

REACTIONS (9)
  - Gastrointestinal haemorrhage [Recovering/Resolving]
  - Electrocauterisation [Recovering/Resolving]
  - Colonoscopy [Recovering/Resolving]
  - Endoscopy [Recovering/Resolving]
  - No therapeutic response [Recovering/Resolving]
  - Blood pressure decreased [Unknown]
  - Flushing [Unknown]
  - Headache [Unknown]
  - Anaemia [Unknown]
